FAERS Safety Report 21357775 (Version 1)
Quarter: 2022Q3

REPORT INFORMATION
  Report Type: Report from Study
  Country: IT (occurrence: IT)
  Receive Date: 20220921
  Receipt Date: 20220921
  Transmission Date: 20221027
  Serious: Yes (Death, Hospitalization)
  Sender: FDA-Public Use
  Company Number: IT-TEVA-2022-IT-2074626

PATIENT
  Age: 16 Month
  Sex: Female

DRUGS (6)
  1. VINCRISTINE [Suspect]
     Active Substance: VINCRISTINE
     Indication: Medulloblastoma
     Dosage: 1.4 MG/M2
     Route: 065
  2. METHOTREXATE [Suspect]
     Active Substance: METHOTREXATE
     Indication: Medulloblastoma
     Dosage: 8 G/M2 AT WEEK 0 AND 1
     Route: 065
  3. ETOPOSIDE [Suspect]
     Active Substance: ETOPOSIDE
     Indication: Medulloblastoma
     Dosage: 2.4 G/M2 AT WEEK 4
     Route: 065
  4. CARBOPLATIN [Suspect]
     Active Substance: CARBOPLATIN
     Indication: Medulloblastoma
     Dosage: ON THE WEEK 7, 800 MG/M2
     Route: 065
  5. CYCLOPHOSPHAMIDE [Suspect]
     Active Substance: CYCLOPHOSPHAMIDE
     Indication: Medulloblastoma
     Dosage: 4 G/M2 AT WEEK 7
     Route: 065
  6. THIOTEPA [Suspect]
     Active Substance: THIOTEPA
     Indication: Medulloblastoma
     Dosage: FOR 3 CONSECUTIVE DAYS, 300 MG/M2
     Route: 065

REACTIONS (7)
  - Cardiotoxicity [Fatal]
  - Cardiac failure [Fatal]
  - Brain natriuretic peptide increased [Fatal]
  - Left ventricular dysfunction [Fatal]
  - Left ventricular failure [Fatal]
  - Mitral valve incompetence [Fatal]
  - Tricuspid valve incompetence [Fatal]
